FAERS Safety Report 10986738 (Version 2)
Quarter: 2015Q2

REPORT INFORMATION
  Report Type: Spontaneous
  Country: US (occurrence: US)
  Receive Date: 20150404
  Receipt Date: 20150525
  Transmission Date: 20150821
  Serious: No
  Sender: FDA-Public Use
  Company Number: US-JNJFOC-20131102168

PATIENT
  Age: 82 Year
  Sex: Female
  Weight: 52.16 kg

DRUGS (4)
  1. IMODIUM MULTI-SYMPTOM RELIEF [Suspect]
     Active Substance: DIMETHICONE\LOPERAMIDE HYDROCHLORIDE
     Route: 048
  2. POTASSIUM [Concomitant]
     Active Substance: POTASSIUM
     Route: 065
  3. IMODIUM MULTI-SYMPTOM RELIEF [Suspect]
     Active Substance: DIMETHICONE\LOPERAMIDE HYDROCHLORIDE
     Indication: DIARRHOEA
     Dosage: 2 CAPLET FIRST, THEN 1 AFTER
     Route: 048
  4. SYNTHROID [Concomitant]
     Active Substance: LEVOTHYROXINE SODIUM
     Indication: GOITRE
     Dosage: 58 YEARS
     Route: 065

REACTIONS (5)
  - Product difficult to swallow [Unknown]
  - Product size issue [Unknown]
  - Faeces discoloured [Recovered/Resolved]
  - Wrong technique in drug usage process [Unknown]
  - Chromaturia [Recovered/Resolved]

NARRATIVE: CASE EVENT DATE: 20131027
